FAERS Safety Report 19834663 (Version 3)
Quarter: 2022Q3

REPORT INFORMATION
  Report Type: Spontaneous
  Country: ES (occurrence: ES)
  Receive Date: 20210914
  Receipt Date: 20220703
  Transmission Date: 20221027
  Serious: Yes (Other)
  Sender: FDA-Public Use
  Company Number: ES-002147023-NVSC2021ES120385

PATIENT
  Sex: Female

DRUGS (3)
  1. XOLAIR [Suspect]
     Active Substance: OMALIZUMAB
     Indication: Asthma
     Dosage: UNK
     Route: 065
  2. SINGULAIR [Concomitant]
     Active Substance: MONTELUKAST SODIUM
     Indication: Asthma
     Dosage: 10 MG
     Route: 048
     Dates: start: 20170720
  3. OMALIZUMAB [Concomitant]
     Active Substance: OMALIZUMAB
     Indication: Asthma
     Dosage: 300 MG,EVERY 4 WEEKS
     Route: 058

REACTIONS (6)
  - Pre-eclampsia [Unknown]
  - Polymorphic eruption of pregnancy [Recovering/Resolving]
  - Hypoglycaemia [Unknown]
  - Hypotension [Unknown]
  - Blood pressure fluctuation [Unknown]
  - Maternal exposure during pregnancy [Unknown]
